FAERS Safety Report 15429879 (Version 1)
Quarter: 2018Q3

REPORT INFORMATION
  Report Type: Spontaneous
  Country: US (occurrence: US)
  Receive Date: 20180920
  Receipt Date: 20180920
  Transmission Date: 20181010
  Serious: No
  Sender: FDA-Public Use
  Company Number: None

PATIENT
  Age: 34 Year
  Sex: Male

DRUGS (1)
  1. INTERFERON BETA?1A [Suspect]
     Active Substance: INTERFERON BETA-1A
     Indication: MULTIPLE SCLEROSIS
     Route: 030
     Dates: start: 20180320, end: 20180814

REACTIONS (4)
  - Nightmare [None]
  - Joint swelling [None]
  - Injection site pain [None]
  - Arthralgia [None]

NARRATIVE: CASE EVENT DATE: 20180814
